FAERS Safety Report 19774799 (Version 1)
Quarter: 2021Q3

REPORT INFORMATION
  Report Type: Spontaneous
  Country: US (occurrence: US)
  Receive Date: 20210901
  Receipt Date: 20210901
  Transmission Date: 20211014
  Serious: Yes (Other)
  Sender: FDA-Public Use
  Company Number: US-009507513-1806USA003647

PATIENT
  Sex: Female

DRUGS (2)
  1. ZOSTAVAX [Suspect]
     Active Substance: VARICELLA-ZOSTER VIRUS STRAIN OKA/MERCK LIVE ANTIGEN
     Indication: PROPHYLAXIS
     Dosage: .65 MILLILITER
     Route: 058
     Dates: start: 20140110, end: 20140110
  2. STERILE DILUENT (WATER) [Suspect]
     Active Substance: WATER

REACTIONS (8)
  - Ophthalmic herpes zoster [Unknown]
  - Dermatitis contact [Unknown]
  - Herpes zoster [Unknown]
  - Pain [Unknown]
  - Arthropod bite [Unknown]
  - Muscle strain [Unknown]
  - Postmenopause [Unknown]
  - Vaccination failure [Unknown]

NARRATIVE: CASE EVENT DATE: 20160621
